FAERS Safety Report 5619534-7 (Version None)
Quarter: 2008Q1

REPORT INFORMATION
  Report Type: 
  Country: None (occurrence: None)
  Receive Date: 20080114
  Receipt Date: 20061120
  Transmission Date: 20080703
  Serious: Yes (Hospitalization)
  Sender: FDA-Public Use
  Company Number: A03200606958

PATIENT
  Sex: Male

DRUGS (2)
  1. PLAVIX [Suspect]
     Indication: STENT PLACEMENT
     Dosage: ORAL
     Route: 048
     Dates: start: 20060901, end: 20061117
  2. ACETYLSALICYLIC ACID SRT [Concomitant]

REACTIONS (1)
  - DIVERTICULUM INTESTINAL HAEMORRHAGIC [None]
